FAERS Safety Report 24936856 (Version 2)
Quarter: 2025Q1

REPORT INFORMATION
  Report Type: Report from Study
  Country: DE (occurrence: DE)
  Receive Date: 20250206
  Receipt Date: 20250213
  Transmission Date: 20250409
  Serious: No
  Sender: RANBAXY
  Company Number: DE-SUN PHARMACEUTICAL INDUSTRIES LTD-2025RR-493018

PATIENT
  Sex: Male

DRUGS (1)
  1. TILDRAKIZUMAB [Suspect]
     Active Substance: TILDRAKIZUMAB
     Indication: Psoriasis
     Route: 065

REACTIONS (1)
  - Loss of therapeutic response [Not Recovered/Not Resolved]
